FAERS Safety Report 5086515-4 (Version None)
Quarter: 2006Q3

REPORT INFORMATION
  Report Type: 
  Country: None (occurrence: None)
  Receive Date: 20060821
  Receipt Date: 20060821
  Transmission Date: 20061208
  Serious: Yes (Other)
  Sender: FDA-Public Use
  Company Number: None

PATIENT
  Age: 63 Year
  Sex: Female
  Weight: 43.0917 kg

DRUGS (2)
  1. AVELOX [Suspect]
     Indication: SINUS DISORDER
     Dosage: 1 TABLET 1X A DAY    PO
     Route: 048
     Dates: start: 20060613, end: 20060619
  2. AVELOX [Suspect]
     Indication: SINUS DISORDER
     Dosage: 1 TABLET 1X A DAY    PO
     Route: 048
     Dates: start: 20060818, end: 20060818

REACTIONS (6)
  - DISORIENTATION [None]
  - DIZZINESS [None]
  - FEELING ABNORMAL [None]
  - MEMORY IMPAIRMENT [None]
  - VISUAL DISTURBANCE [None]
  - WRONG TECHNIQUE IN DRUG USAGE PROCESS [None]
